FAERS Safety Report 6860257-4 (Version None)
Quarter: 2010Q3

REPORT INFORMATION
  Report Type: 
  Country: None (occurrence: None)
  Receive Date: 20100720
  Receipt Date: 20100707
  Transmission Date: 20110219
  Serious: Yes (Other)
  Sender: FDA-Public Use
  Company Number: PHHY2009DK04309

PATIENT
  Sex: Female
  Weight: 54 kg

DRUGS (6)
  1. ACLASTA [Suspect]
     Indication: OSTEOPOROSIS
     Dosage: 5 MG YEARLY
     Dates: start: 20080226
  2. ACLASTA [Suspect]
     Dosage: 5 MG
     Dates: start: 20090210
  3. PREDNISOLONE [Suspect]
     Dosage: UNK
  4. METHOTREXATE [Suspect]
     Dosage: UNK
  5. REMICADE [Suspect]
     Dosage: 100 MG
     Route: 042
  6. PRILOSEC [Suspect]
     Dosage: UNK

REACTIONS (2)
  - MOBILITY DECREASED [None]
  - MUSCULOSKELETAL PAIN [None]
